FAERS Safety Report 4353857-7 (Version None)
Quarter: 2004Q2

REPORT INFORMATION
  Report Type: 
  Country: None (occurrence: None)
  Receive Date: 20040430
  Receipt Date: 20040421
  Transmission Date: 20050107
  Serious: Yes (Life-Threatening, Hospitalization, Other)
  Sender: FDA-Public Use
  Company Number: 2004-03-1916

PATIENT
  Age: 57 Year
  Sex: Female
  Weight: 64 kg

DRUGS (13)
  1. TEMODAL [Suspect]
     Indication: GLIOBLASTOMA MULTIFORME
     Dosage: 120 MG QD ORAL
     Route: 048
     Dates: start: 20040218, end: 20040318
  2. AMBISOME [Suspect]
     Indication: ANTIFUNGAL PROPHYLAXIS
     Dosage: 50-300 MG* INTRAVENOUS
     Route: 042
     Dates: start: 20040401, end: 20040402
  3. AMBISOME [Suspect]
     Indication: ANTIFUNGAL PROPHYLAXIS
     Dosage: 50-300 MG* INTRAVENOUS
     Route: 042
     Dates: start: 20040403, end: 20040404
  4. AMBISOME [Suspect]
     Indication: ANTIFUNGAL PROPHYLAXIS
     Dosage: 50-300 MG* INTRAVENOUS
     Route: 042
     Dates: start: 20040405, end: 20040406
  5. AMBISOME [Suspect]
     Indication: ANTIFUNGAL PROPHYLAXIS
     Dosage: 50-300 MG* INTRAVENOUS
     Route: 042
     Dates: start: 20040407, end: 20040408
  6. AMBISOME [Suspect]
     Indication: ANTIFUNGAL PROPHYLAXIS
     Dosage: 50-300 MG* INTRAVENOUS
     Route: 042
     Dates: start: 20040409, end: 20040410
  7. DEPAKINE TABLETS [Suspect]
     Indication: EPILEPSY
     Dosage: 500 MG BID ORAL
     Route: 048
     Dates: start: 20040205, end: 20040318
  8. DEPAKINE TABLETS [Suspect]
     Indication: PROPHYLAXIS
     Dosage: 500 MG BID ORAL
     Route: 048
     Dates: start: 20040205, end: 20040318
  9. MEDROL [Suspect]
     Indication: GLIOBLASTOMA MULTIFORME
     Dosage: 16MG TID-BID* ORAL
     Route: 048
     Dates: start: 20040218, end: 20040326
  10. MEDROL [Suspect]
     Indication: GLIOBLASTOMA MULTIFORME
     Dosage: 16MG TID-BID* ORAL
     Route: 048
     Dates: start: 20040327
  11. NEUPOGEN [Concomitant]
  12. NEUPOGEN [Concomitant]
  13. EPREX [Concomitant]

REACTIONS (3)
  - HYPOKALAEMIA [None]
  - PANCYTOPENIA [None]
  - PYREXIA [None]
